FAERS Safety Report 5664288-1 (Version None)
Quarter: 2008Q1

REPORT INFORMATION
  Report Type: 
  Country: None (occurrence: None)
  Receive Date: 20080314
  Receipt Date: 20080303
  Transmission Date: 20080703
  Serious: Yes (Death)
  Sender: FDA-Public Use
  Company Number: CA-GENENTECH-257373

PATIENT
  Sex: Female

DRUGS (1)
  1. AVASTIN [Suspect]
     Indication: RECTAL CANCER
     Dosage: 300 MG, UNK
     Route: 042
     Dates: start: 20070821, end: 20080108

REACTIONS (2)
  - DEATH [None]
  - INTESTINAL OBSTRUCTION [None]
